FAERS Safety Report 9240220 (Version 4)
Quarter: 2014Q1

REPORT INFORMATION
  Report Type: Spontaneous
  Country: JP (occurrence: None)
  Receive Date: 20130417
  Receipt Date: 20140225
  Transmission Date: 20141002
  Serious: Yes (Death, Other)
  Sender: FDA-Public Use
  Company Number: ADR-2013-00655

PATIENT
  Age: 65 Year
  Sex: Male

DRUGS (5)
  1. GABALON [Suspect]
  2. CORINAEL CR 20 [Concomitant]
  3. BIOPRESS [Concomitant]
  4. LENDORMIN D [Concomitant]
  5. TRYPTANOL [Concomitant]

REACTIONS (3)
  - Diarrhoea [None]
  - Vomiting [None]
  - Sepsis [None]
